FAERS Safety Report 21408196 (Version 2)
Quarter: 2022Q4

REPORT INFORMATION
  Report Type: Spontaneous
  Country: US (occurrence: US)
  Receive Date: 20221004
  Receipt Date: 20221028
  Transmission Date: 20230112
  Serious: No
  Sender: FDA-Public Use
  Company Number: US-NXDC-2022GLE00044

PATIENT
  Age: 70 Year
  Sex: Male
  Weight: 142.3 kg

DRUGS (12)
  1. GLEOLAN [Suspect]
     Active Substance: AMINOLEVULINIC ACID HYDROCHLORIDE
     Indication: Product used for unknown indication
     Route: 048
     Dates: start: 20220923
  2. ACETAMINOPHEN [Concomitant]
     Active Substance: ACETAMINOPHEN
     Indication: Premedication
     Dosage: 60MG PO/NG PRN EVERY 6 HOURS
  3. DEXAMETHASONE [Concomitant]
     Active Substance: DEXAMETHASONE
     Indication: Premedication
     Dosage: DEXAMETHASONE 4MG PO/NG EVERY 6 HOURS
  4. DOCUSATE SODIUM [Concomitant]
     Active Substance: DOCUSATE SODIUM
     Indication: Premedication
     Dosage: 100MG PO/NG TWO TIMES A DAY
  5. DOFETILIDE [Concomitant]
     Active Substance: DOFETILIDE
     Indication: Premedication
     Dosage: 500MG PO EVERY 12 HOURS
     Route: 048
  6. FAMOTIDINE [Concomitant]
     Active Substance: FAMOTIDINE
     Indication: Premedication
     Dosage: 20MG PO/NG TWO TIMES A DAY
  7. HEPARIN [Concomitant]
     Active Substance: HEPARIN SODIUM
     Indication: Premedication
     Dosage: 5000 UNITS SQ TWO TIMES A DAY
     Route: 058
  8. LEVETIRACETAM [Concomitant]
     Active Substance: LEVETIRACETAM
     Indication: Premedication
     Route: 048
  9. Normal Saline 0.9% [Concomitant]
     Indication: Premedication
     Dosage: 1000ML INFUSION AT 65CC/HR
  10. POLYETHYLENE GLYCOL [Concomitant]
     Active Substance: POLYETHYLENE GLYCOL
     Indication: Premedication
     Dosage: 17GM PO/NG DAILY
  11. SENNA [Concomitant]
     Active Substance: SENNA LEAF\SENNOSIDES\SENNOSIDES A AND B
     Indication: Premedication
     Dosage: 17.2MG PO/NG AT BEDTIME
  12. DEXTROSE, SODIUM CHLORIDE, AND POTASSIUM CHLORIDE [Concomitant]
     Active Substance: DEXTROSE\POTASSIUM CHLORIDE\SODIUM CHLORIDE
     Indication: Premedication
     Dosage: 3-10ML IV EVERY 8 HOURS AND AS NEEDED LINE FLUSH
     Route: 042

REACTIONS (1)
  - Photosensitivity reaction [Recovered/Resolved]

NARRATIVE: CASE EVENT DATE: 20220923
